FAERS Safety Report 9274746 (Version 1)
Quarter: 2013Q2

REPORT INFORMATION
  Report Type: Spontaneous
  Country: US (occurrence: None)
  Receive Date: 20130429
  Receipt Date: 20130429
  Transmission Date: 20140414
  Serious: Yes (Life-Threatening, Other)
  Sender: FDA-Public Use
  Company Number: 001525425A

PATIENT
  Age: 81 Year
  Sex: Female

DRUGS (2)
  1. SUPERSMILE [Suspect]
     Dosage: ONCE DAILY ORAL
     Route: 048
     Dates: start: 20130205, end: 20130209
  2. UNDISCLOSED MEDICATONS FOR DIABETES AND HYPERTENSION [Concomitant]

REACTIONS (3)
  - Dysphagia [None]
  - Hypersensitivity [None]
  - Speech disorder [None]
